FAERS Safety Report 14641267 (Version 4)
Quarter: 2018Q2

REPORT INFORMATION
  Report Type: Report from Study
  Country: GB (occurrence: GB)
  Receive Date: 20180315
  Receipt Date: 20180515
  Transmission Date: 20180711
  Serious: No
  Sender: FDA-Public Use
  Company Number: GB-AMGEN-GBRCT2018033769

PATIENT
  Age: 68 Year
  Sex: Male
  Weight: 83.6 kg

DRUGS (3)
  1. BLINATUMOMAB [Suspect]
     Active Substance: BLINATUMOMAB
     Indication: B-CELL LYMPHOMA
     Dosage: 112 MUG, QD
     Route: 042
     Dates: start: 20170808
  2. AUGMENTIN [Concomitant]
     Active Substance: AMOXICILLIN\CLAVULANATE POTASSIUM
     Dosage: 500 MG, UNK
     Route: 048
     Dates: start: 20171108, end: 20171113
  3. DEXAMETHASONE. [Concomitant]
     Active Substance: DEXAMETHASONE
     Dosage: 2-24 MG, UNK
     Dates: start: 20170822

REACTIONS (1)
  - Transplant evaluation [Recovered/Resolved]

NARRATIVE: CASE EVENT DATE: 20171114
